FAERS Safety Report 5716854-2 (Version None)
Quarter: 2008Q2

REPORT INFORMATION
  Report Type: 
  Country: None (occurrence: None)
  Receive Date: 20080422
  Receipt Date: 20080407
  Transmission Date: 20081010
  Serious: Yes (Death)
  Sender: FDA-Public Use
  Company Number: DSA_31697_2008

PATIENT
  Age: 77 Year
  Sex: Male

DRUGS (5)
  1. ENALAPRIL MALEATE [Suspect]
     Indication: ESSENTIAL HYPERTENSION
     Dosage: (5 MG QD ORAL)
     Route: 048
     Dates: start: 20020101, end: 20061124
  2. SIMVASTATIN [Suspect]
     Indication: HYPERCHOLESTEROLAEMIA
     Dosage: (20 MG QD ORAL)
     Route: 048
     Dates: start: 20020101, end: 20061124
  3. ACETYLSALICYLIC ACID SRT [Concomitant]
  4. CETIRIZINE HCL [Concomitant]
  5. FELODIPINE [Concomitant]

REACTIONS (1)
  - PANCREATITIS [None]
